FAERS Safety Report 15968740 (Version 1)
Quarter: 2019Q1

REPORT INFORMATION
  Report Type: Spontaneous
  Country: AT (occurrence: AT)
  Receive Date: 20190215
  Receipt Date: 20190215
  Transmission Date: 20190418
  Serious: Yes (Hospitalization, Other)
  Sender: FDA-Public Use
  Company Number: AT-009507513-1902AUT004895

PATIENT
  Sex: Male
  Weight: 200 kg

DRUGS (3)
  1. RIFOLDIN [Concomitant]
     Active Substance: RIFAMPIN
     Dosage: UNK
     Dates: start: 2018
  2. CUBICIN [Suspect]
     Active Substance: DAPTOMYCIN
     Dosage: UNK
     Dates: start: 2018
  3. COLISTIN [Concomitant]
     Active Substance: COLISTIN
     Dosage: UNK
     Dates: start: 2018

REACTIONS (3)
  - Candida infection [Unknown]
  - Drug ineffective [Unknown]
  - Device related infection [Unknown]

NARRATIVE: CASE EVENT DATE: 2018
